FAERS Safety Report 15160359 (Version 6)
Quarter: 2018Q4

REPORT INFORMATION
  Report Type: Spontaneous
  Country: NL (occurrence: NL)
  Receive Date: 20180718
  Receipt Date: 20181221
  Transmission Date: 20190204
  Serious: Yes (Death, Other)
  Sender: FDA-Public Use
  Company Number: PHHY2018NL044265

PATIENT
  Age: 77 Year
  Sex: Male

DRUGS (17)
  1. RIFAMPICIN [Suspect]
     Active Substance: RIFAMPIN
     Indication: HEPATOTOXICITY
  2. ISONIAZID. [Suspect]
     Active Substance: ISONIAZID
     Indication: DISSEMINATED BACILLUS CALMETTE-GUERIN INFECTION
     Dosage: 300 MG, QD
     Route: 065
  3. ETHAMBUTOL [Suspect]
     Active Substance: ETHAMBUTOL HYDROCHLORIDE
     Indication: HEPATITIS A
  4. ISONIAZID. [Suspect]
     Active Substance: ISONIAZID
     Indication: HEPATITIS A
  5. ISONIAZID. [Suspect]
     Active Substance: ISONIAZID
     Indication: HEPATOTOXICITY
  6. ETHAMBUTOL [Suspect]
     Active Substance: ETHAMBUTOL HYDROCHLORIDE
     Indication: DISSEMINATED BACILLUS CALMETTE-GUERIN INFECTION
     Dosage: 1600 MG, QD
     Route: 065
  7. ETHAMBUTOL [Suspect]
     Active Substance: ETHAMBUTOL HYDROCHLORIDE
     Indication: PNEUMONIA
  8. ETHAMBUTOL [Suspect]
     Active Substance: ETHAMBUTOL HYDROCHLORIDE
     Indication: PNEUMONIA
  9. PREDNISONE. [Concomitant]
     Active Substance: PREDNISONE
     Indication: HEPATITIS A
  10. ETHAMBUTOL [Suspect]
     Active Substance: ETHAMBUTOL HYDROCHLORIDE
     Indication: HEPATOTOXICITY
  11. PREDNISONE. [Concomitant]
     Active Substance: PREDNISONE
     Indication: PNEUMONIA
     Dosage: 20 MG, QD
     Route: 065
  12. ISONIAZID. [Suspect]
     Active Substance: ISONIAZID
     Indication: PNEUMONIA
  13. RIFAMPICIN [Suspect]
     Active Substance: RIFAMPIN
     Indication: DISSEMINATED BACILLUS CALMETTE-GUERIN INFECTION
     Dosage: 600 MG, QD
     Route: 065
  14. RIFAMPICIN [Suspect]
     Active Substance: RIFAMPIN
     Indication: PNEUMONIA
  15. RIFAMPICIN [Suspect]
     Active Substance: RIFAMPIN
     Indication: HEPATITIS A
  16. BCG [Suspect]
     Active Substance: BCG VACCINE
     Indication: BLADDER CANCER
     Dosage: UNK
     Route: 043
  17. PREDNISONE. [Concomitant]
     Active Substance: PREDNISONE
     Indication: DISSEMINATED BACILLUS CALMETTE-GUERIN INFECTION

REACTIONS (9)
  - Hepatitis [Fatal]
  - Drug ineffective [Unknown]
  - Pyrexia [Recovered/Resolved]
  - Cough [Recovered/Resolved]
  - Hilar lymphadenopathy [Recovered/Resolved]
  - Dyspnoea [Recovered/Resolved]
  - Hepatotoxicity [Unknown]
  - Metastasis [Fatal]
  - Pneumonitis [Recovered/Resolved]
